FAERS Safety Report 15709023 (Version 4)
Quarter: 2019Q1

REPORT INFORMATION
  Report Type: Other
  Country: CA (occurrence: CA)
  Receive Date: 20181211
  Receipt Date: 20190329
  Transmission Date: 20190417
  Serious: Yes (Death, Hospitalization)
  Sender: FDA-Public Use
  Company Number: CA-INTERCEPT-PMOCA2018001916

PATIENT

DRUGS (10)
  1. URSODIOL. [Concomitant]
     Active Substance: URSODIOL
     Dosage: 1500 MG, QD
  2. PLAVIX [Concomitant]
     Active Substance: CLOPIDOGREL BISULFATE
  3. ERGOCALCIFEROL. [Concomitant]
     Active Substance: ERGOCALCIFEROL
  4. OCALIVA [Suspect]
     Active Substance: OBETICHOLIC ACID
     Indication: PRIMARY BILIARY CHOLANGITIS
     Dosage: 5 MG, QD
     Route: 048
     Dates: start: 20181109
  5. GABAPENTIN. [Concomitant]
     Active Substance: GABAPENTIN
  6. PANTOLOC                           /01263201/ [Concomitant]
     Active Substance: PANTOPRAZOLE SODIUM
     Dosage: 40 MG, BID
  7. CRESTOR [Concomitant]
     Active Substance: ROSUVASTATIN CALCIUM
  8. RISEDRONATE [Concomitant]
     Active Substance: RISEDRONATE SODIUM
  9. HYDROMORPH CONTIN [Suspect]
     Active Substance: HYDROMORPHONE
  10. DILAUDID [Suspect]
     Active Substance: HYDROMORPHONE HYDROCHLORIDE

REACTIONS (15)
  - Frequent bowel movements [Not Recovered/Not Resolved]
  - Confusional state [Unknown]
  - Overdose [Not Recovered/Not Resolved]
  - Asthenia [Unknown]
  - Decreased appetite [Unknown]
  - Sepsis [Unknown]
  - Somnolence [Unknown]
  - Hepatic failure [Fatal]
  - Hepatorenal syndrome [Unknown]
  - Ischaemic hepatitis [Unknown]
  - Disorganised speech [Not Recovered/Not Resolved]
  - Influenza like illness [Not Recovered/Not Resolved]
  - Abdominal pain [Unknown]
  - Peripheral swelling [Not Recovered/Not Resolved]
  - Loss of consciousness [Not Recovered/Not Resolved]

NARRATIVE: CASE EVENT DATE: 20181109
